FAERS Safety Report 4668474-9 (Version None)
Quarter: 2005Q2

REPORT INFORMATION
  Report Type: 
  Country: None (occurrence: None)
  Receive Date: 20050519
  Receipt Date: 20050503
  Transmission Date: 20051028
  Serious: Yes (Hospitalization, Other)
  Sender: FDA-Public Use
  Company Number: 2005-127990-NL

PATIENT
  Age: 54 Year
  Sex: Male

DRUGS (3)
  1. REMERON [Suspect]
     Indication: DEPRESSION
     Dosage: 30 MG QD ORAL, HS
     Route: 048
     Dates: start: 20040901, end: 20050503
  2. SEROQUEL [Concomitant]
  3. DEPAKOTE [Concomitant]

REACTIONS (9)
  - ABNORMAL BEHAVIOUR [None]
  - DISORIENTATION [None]
  - DRUG LEVEL BELOW THERAPEUTIC [None]
  - FALL [None]
  - GRAND MAL CONVULSION [None]
  - HEADACHE [None]
  - MAJOR DEPRESSION [None]
  - MENTAL STATUS CHANGES [None]
  - SPEECH DISORDER [None]
